FAERS Safety Report 4607879-9 (Version None)
Quarter: 2005Q1

REPORT INFORMATION
  Report Type: 
  Country: None (occurrence: None)
  Receive Date: 20050310
  Receipt Date: 20050225
  Transmission Date: 20050727
  Serious: Yes (Hospitalization)
  Sender: FDA-Public Use
  Company Number: 2005SE01178

PATIENT
  Age: 68 Year
  Sex: Female

DRUGS (9)
  1. BLOPRESS [Suspect]
     Indication: HYPERTENSION
     Dosage: 12 MG DAILY PO
     Route: 048
     Dates: end: 20050218
  2. NORVASC [Concomitant]
  3. OMEPRAL [Concomitant]
  4. ASPIRIN [Concomitant]
  5. LASIX [Concomitant]
  6. ARTIST [Concomitant]
  7. AMARYL [Concomitant]
  8. KINEDAK [Concomitant]
  9. MEVALOTIN [Concomitant]

REACTIONS (1)
  - INTERSTITIAL LUNG DISEASE [None]
